FAERS Safety Report 10081906 (Version 1)
Quarter: 2014Q2

REPORT INFORMATION
  Report Type: Spontaneous
  Country: US (occurrence: None)
  Receive Date: 20140415
  Receipt Date: 20140415
  Transmission Date: 20141212
  Serious: No
  Sender: FDA-Public Use
  Company Number: None

PATIENT
  Age: 67 Year
  Sex: Female

DRUGS (1)
  1. SOVALDI [Suspect]
     Indication: HEPATITIS C
     Route: 048

REACTIONS (1)
  - Incorrect dose administered [None]
